FAERS Safety Report 4971946-0 (Version None)
Quarter: 2006Q2

REPORT INFORMATION
  Report Type: 
  Country: None (occurrence: None)
  Receive Date: 20060407
  Receipt Date: 20060328
  Transmission Date: 20061013
  Serious: Yes (Life-Threatening, Other)
  Sender: FDA-Public Use
  Company Number: 2006043469

PATIENT
  Sex: Female

DRUGS (4)
  1. ZOLOFT [Suspect]
     Indication: DEPRESSION
     Dosage: 150 MG (150 MG, 1 IN 1 D)
  2. ALL OTHER THERAPEUTIC PRODUCTS (ALL OTHER THERAPEUTIC PRODUCTS) [Suspect]
     Indication: COUGH
  3. CHEMOTHERAPY NOS (CHEMOTHERAPY NOS) [Suspect]
     Indication: BREAST CANCER METASTATIC
  4. INVESTIGATIONAL DRUG (INVESTIGATIONAL DRUG) [Suspect]
     Indication: ILL-DEFINED DISORDER

REACTIONS (8)
  - ABDOMINAL PAIN UPPER [None]
  - COUGH [None]
  - DRUG INEFFECTIVE [None]
  - FEELING ABNORMAL [None]
  - METASTASES TO LUNG [None]
  - PAIN [None]
  - REFUSAL OF TREATMENT BY PATIENT [None]
  - THERAPY NON-RESPONDER [None]
